FAERS Safety Report 4723200-X (Version None)
Quarter: 2005Q3

REPORT INFORMATION
  Report Type: 
  Country: None (occurrence: None)
  Receive Date: 20050720
  Receipt Date: 20050706
  Transmission Date: 20060218
  Serious: Yes (Hospitalization)
  Sender: FDA-Public Use
  Company Number: US-2005-011230

PATIENT
  Age: 60 Year
  Sex: Male

DRUGS (7)
  1. BETASERON [Suspect]
     Indication: MULTIPLE SCLEROSIS
     Dosage: 8 MIU,EVERY 2D, SUBCUTANEOUS
     Route: 058
     Dates: start: 20000725, end: 20050618
  2. BETASERON [Suspect]
     Indication: MULTIPLE SCLEROSIS
     Dosage: 8 MIU,EVERY 2D, SUBCUTANEOUS
     Route: 058
     Dates: start: 20050621
  3. WELLBUTRIN [Concomitant]
  4. UROXATRAL [Concomitant]
  5. AMANTADINE (AMANTADINE0 [Concomitant]
  6. LOPID [Concomitant]
  7. PRILOSEC [Concomitant]

REACTIONS (14)
  - ABDOMINAL PAIN [None]
  - BLOOD CREATININE INCREASED [None]
  - BLOOD UREA INCREASED [None]
  - DEHYDRATION [None]
  - DRUG INEFFECTIVE [None]
  - DYSURIA [None]
  - FALL [None]
  - HAEMATOCRIT INCREASED [None]
  - ILEUS [None]
  - MUSCLE SPASMS [None]
  - NAUSEA [None]
  - PROSTATIC OBSTRUCTION [None]
  - URINARY RETENTION [None]
  - VOMITING [None]
